FAERS Safety Report 16831617 (Version 1)
Quarter: 2019Q3

REPORT INFORMATION
  Report Type: Spontaneous
  Country: FR (occurrence: FR)
  Receive Date: 20190920
  Receipt Date: 20190920
  Transmission Date: 20191005
  Serious: Yes (Hospitalization, Other)
  Sender: FDA-Public Use
  Company Number: FR-SUN PHARMACEUTICAL INDUSTRIES LTD-2019RR-221179

PATIENT
  Age: 50 Year
  Sex: Female

DRUGS (1)
  1. PARACETAMOL [Suspect]
     Active Substance: ACETAMINOPHEN
     Indication: PRODUCT USED FOR UNKNOWN INDICATION
     Dosage: 16 GRAM, IN TOTAL
     Route: 048
     Dates: start: 20190225, end: 20190225

REACTIONS (5)
  - Abdominal tenderness [Recovered/Resolved]
  - Suicide attempt [Unknown]
  - Liver function test abnormal [Recovered/Resolved]
  - Vomiting [Recovered/Resolved]
  - Toxicity to various agents [Recovered/Resolved]

NARRATIVE: CASE EVENT DATE: 20190225
